FAERS Safety Report 4966098-7 (Version None)
Quarter: 2006Q2

REPORT INFORMATION
  Report Type: 
  Country: None (occurrence: None)
  Receive Date: 20060403
  Receipt Date: 20060320
  Transmission Date: 20061013
  Serious: Yes (Hospitalization)
  Sender: FDA-Public Use
  Company Number: 2006037921

PATIENT
  Age: 81 Year
  Sex: Female

DRUGS (8)
  1. CLINDAMYCIN HCL [Suspect]
     Indication: ERYSIPELAS
     Dosage: 1200 MG (300 MG, 1 IN 1 D), ORAL
     Route: 048
     Dates: start: 20051212, end: 20051219
  2. CIPROFLOXACIN [Suspect]
     Indication: ERYSIPELAS
     Dosage: 1000 MG (500 MG, 2 IN 1 D), ORAL
     Route: 048
     Dates: start: 20051212, end: 20051219
  3. ZESTORETIC [Concomitant]
  4. MEPHANOL (ALLOPURINOL) [Concomitant]
  5. MORPHINE SULFATE [Concomitant]
  6. PAROXETIN-MEPHA (PAROXETINE) [Concomitant]
  7. TORASEM (TORASEMIDE) [Concomitant]
  8. XENALON (SPIRONOLACTONE) [Concomitant]

REACTIONS (4)
  - FATIGUE [None]
  - OLIGURIA [None]
  - RASH [None]
  - RENAL FAILURE ACUTE [None]
